FAERS Safety Report 6796376-0 (Version None)
Quarter: 2010Q2

REPORT INFORMATION
  Report Type: 
  Country: None (occurrence: None)
  Receive Date: 20100622
  Receipt Date: 20100611
  Transmission Date: 20101027
  Serious: Yes (Hospitalization)
  Sender: FDA-Public Use
  Company Number: LEO-2010-00551

PATIENT
  Age: 23 Year
  Sex: Female
  Weight: 71 kg

DRUGS (1)
  1. INNOHEP [Suspect]
     Indication: DEEP VEIN THROMBOSIS
     Dosage: 12000 IU (12000 IU, 1 IN 1 D), SUBCUTANEOUS
     Route: 058
     Dates: start: 20050826, end: 20060201

REACTIONS (6)
  - DRUG EXPOSURE DURING PREGNANCY [None]
  - LABOUR PAIN [None]
  - PREMATURE LABOUR [None]
  - THROMBOPHLEBITIS [None]
  - TONSILLITIS [None]
  - URINARY TRACT INFECTION [None]
